FAERS Safety Report 16695591 (Version 3)
Quarter: 2019Q3

REPORT INFORMATION
  Report Type: Spontaneous
  Country: ES (occurrence: ES)
  Receive Date: 20190813
  Receipt Date: 20190816
  Transmission Date: 20191004
  Serious: Yes (Hospitalization)
  Sender: FDA-Public Use
  Company Number: ES-VISTAPHARM, INC.-VER201908-000708

PATIENT
  Age: 36 Year
  Sex: Male

DRUGS (12)
  1. OXYCODONE [Suspect]
     Active Substance: OXYCODONE
     Indication: SPINAL PAIN
     Dosage: 5 MG
  2. DIAZEPAM. [Concomitant]
     Active Substance: DIAZEPAM
     Dosage: 3.75 MG
  3. PARACETAMOL [Concomitant]
     Active Substance: ACETAMINOPHEN
     Indication: PAIN
     Dosage: UNKNOWN
  4. RANITIDINE. [Concomitant]
     Active Substance: RANITIDINE
     Indication: PRODUCT USED FOR UNKNOWN INDICATION
     Dosage: 150 MG
  5. IBUPROFEN. [Concomitant]
     Active Substance: IBUPROFEN
     Indication: PAIN
     Dosage: UNKNOWN
  6. DIAZEPAM. [Concomitant]
     Active Substance: DIAZEPAM
     Indication: PSYCHOTIC DISORDER
     Dosage: 10 MG
  7. BACLOFEN. [Concomitant]
     Active Substance: BACLOFEN
     Indication: SPINAL PAIN
     Dosage: 5 MG
  8. NALOXONE [Concomitant]
     Active Substance: NALOXONE
     Indication: SPINAL PAIN
     Dosage: 2.5 MG
  9. NALOXONE [Concomitant]
     Active Substance: NALOXONE
     Dosage: 2.5 MG (RECEIVED HALF A DOSE OF 5MG)
  10. OXYCODONE [Suspect]
     Active Substance: OXYCODONE
     Dosage: 5 MG (RECEIVED HALF A DOSE OF 10MG)
  11. DIAZEPAM. [Concomitant]
     Active Substance: DIAZEPAM
     Indication: SPINAL PAIN
     Dosage: 5 MG
  12. PREGABALIN. [Concomitant]
     Active Substance: PREGABALIN
     Indication: SPINAL PAIN
     Dosage: 75 MG

REACTIONS (2)
  - Drug withdrawal syndrome [Recovering/Resolving]
  - Psychotic disorder [Recovering/Resolving]
